FAERS Safety Report 24835741 (Version 1)
Quarter: 2025Q1

REPORT INFORMATION
  Report Type: Spontaneous
  Country: DE (occurrence: DE)
  Receive Date: 20250113
  Receipt Date: 20250113
  Transmission Date: 20250409
  Serious: Yes (Other)
  Sender: AMGEN
  Company Number: DE-AMGEN-DEUSP2025002280

PATIENT
  Sex: Male

DRUGS (1)
  1. REPATHA [Suspect]
     Active Substance: EVOLOCUMAB
     Indication: Hypercholesterolaemia
     Dosage: UNK, Q2WK (1/14 DAYS)
     Route: 065

REACTIONS (3)
  - Neuropathy peripheral [Unknown]
  - Influenza like illness [Recovered/Resolved]
  - Arthralgia [Unknown]
